FAERS Safety Report 18349284 (Version 3)
Quarter: 2021Q2

REPORT INFORMATION
  Report Type: Other
  Country: CA (occurrence: CA)
  Receive Date: 20201006
  Receipt Date: 20210512
  Transmission Date: 20210717
  Serious: Yes (Other)
  Sender: FDA-Public Use
  Company Number: CA-ACCORD-204128

PATIENT
  Age: 60 Year
  Sex: Female

DRUGS (6)
  1. CISPLATIN. [Suspect]
     Active Substance: CISPLATIN
     Indication: SMALL CELL CARCINOMA
  2. ETOPOSIDE. [Suspect]
     Active Substance: ETOPOSIDE
     Indication: SMALL CELL CARCINOMA
  3. ETOPOSIDE. [Suspect]
     Active Substance: ETOPOSIDE
     Indication: SMALL CELL CARCINOMA
     Dosage: FREQUENCY: CYCLICAL
  4. CISPLATIN. [Suspect]
     Active Substance: CISPLATIN
     Indication: SMALL CELL CARCINOMA
     Dosage: FREQUENCY: CYCLICAL
  5. GRANULOCYTE COLONY STIMULATING [Suspect]
     Active Substance: GRANULOCYTE COLONY-STIMULATING FACTOR NOS
     Indication: SMALL CELL CARCINOMA
  6. FRAGMIN [Suspect]
     Active Substance: DALTEPARIN SODIUM
     Indication: OVARIAN VEIN THROMBOSIS
     Route: 058

REACTIONS (7)
  - Gastroenteritis radiation [Recovered/Resolved]
  - Off label use [Unknown]
  - Neuropathy peripheral [Recovered/Resolved]
  - Deafness [Recovered/Resolved]
  - Gastrointestinal bacterial overgrowth [Recovered/Resolved]
  - Ovarian vein thrombosis [Recovered/Resolved]
  - Neutropenia [Recovered/Resolved]
